FAERS Safety Report 5020979-7 (Version None)
Quarter: 2006Q2

REPORT INFORMATION
  Report Type: 
  Country: None (occurrence: None)
  Receive Date: 20060608
  Receipt Date: 20060525
  Transmission Date: 20061013
  Serious: Yes (Other)
  Sender: FDA-Public Use
  Company Number: PHEH2006US06857

PATIENT
  Age: 73 Year
  Sex: Female
  Weight: 87.528 kg

DRUGS (5)
  1. POTASSIUM CHLORIDE [Concomitant]
     Indication: MINERAL SUPPLEMENTATION
     Dosage: 20 MEQ TWICE DAILY
     Dates: start: 20050830, end: 20060526
  2. DIOVAN [Suspect]
     Indication: HYPERTENSION
     Dosage: 160 MG, QD
     Route: 048
     Dates: start: 20050830, end: 20060526
  3. ATENOLOL [Concomitant]
     Indication: HYPERTENSION
     Dosage: 50 MG, QD
     Route: 048
     Dates: start: 19991223, end: 20060526
  4. NORVASC [Concomitant]
     Indication: HYPERTENSION
     Dosage: 5 MG, QD
     Route: 048
     Dates: start: 20011220, end: 20060526
  5. LORAZEPAM [Concomitant]
     Indication: ANXIETY
     Dosage: 2MG BID PRN
     Route: 048
     Dates: start: 20001228, end: 20060526

REACTIONS (4)
  - BLOOD CALCIUM DECREASED [None]
  - BLOOD GLUCOSE INCREASED [None]
  - HYPOKALAEMIA [None]
  - WEIGHT INCREASED [None]
